FAERS Safety Report 15255942 (Version 1)
Quarter: 2018Q3

REPORT INFORMATION
  Report Type: Spontaneous
  Country: US (occurrence: US)
  Receive Date: 20180718
  Receipt Date: 20180718
  Transmission Date: 20181010
  Serious: Yes (Life-Threatening, Disabling)
  Sender: FDA-Public Use
  Company Number: None

PATIENT
  Age: 66 Year
  Sex: Female
  Weight: 69.75 kg

DRUGS (6)
  1. VALSARTAN 320/HCTZ25, [Suspect]
     Active Substance: HYDROCHLOROTHIAZIDE\VALSARTAN
     Indication: HYPERTENSION
     Route: 048
     Dates: start: 20130101, end: 20180716
  2. LISINOPRIL. [Concomitant]
     Active Substance: LISINOPRIL
  3. DAILY VITAMIN [Concomitant]
     Active Substance: VITAMINS
  4. NADOLOL. [Concomitant]
     Active Substance: NADOLOL
  5. CALCIUM [Concomitant]
     Active Substance: CALCIUM
  6. VALSARTAN 160/HCTZ25 [Suspect]
     Active Substance: HYDROCHLOROTHIAZIDE\VALSARTAN

REACTIONS (5)
  - Lymphoma [None]
  - Recalled product [None]
  - Metastases to liver [None]
  - Metastases to spine [None]
  - Breast cancer [None]

NARRATIVE: CASE EVENT DATE: 20180512
